FAERS Safety Report 18703172 (Version 3)
Quarter: 2021Q1

REPORT INFORMATION
  Report Type: Report from Study
  Country: AU (occurrence: AU)
  Receive Date: 20210105
  Receipt Date: 20210212
  Transmission Date: 20210419
  Serious: Yes (Hospitalization)
  Sender: FDA-Public Use
  Company Number: AU-JNJFOC-20201247415

PATIENT
  Sex: Female

DRUGS (2)
  1. MACITENTAN [Suspect]
     Active Substance: MACITENTAN
     Indication: PULMONARY ARTERIAL HYPERTENSION
     Route: 048
  2. TADALIS [Suspect]
     Active Substance: TADALAFIL
     Indication: PULMONARY ARTERIAL HYPERTENSION

REACTIONS (4)
  - Lower respiratory tract infection [Recovered/Resolved]
  - Decubitus ulcer [Not Recovered/Not Resolved]
  - Sepsis [Recovered/Resolved]
  - Gastrointestinal infection [Recovered/Resolved]
